FAERS Safety Report 13012158 (Version 10)
Quarter: 2017Q3

REPORT INFORMATION
  Report Type: Spontaneous
  Country: US (occurrence: US)
  Receive Date: 20161209
  Receipt Date: 20170712
  Transmission Date: 20171127
  Serious: Yes (Other)
  Sender: FDA-Public Use
  Company Number: PHEH2016US032057

PATIENT
  Sex: Female

DRUGS (2)
  1. ZOFRAN [Suspect]
     Active Substance: ONDANSETRON HYDROCHLORIDE
     Indication: VOMITING IN PREGNANCY
     Dosage: 4 MG, PRN
     Route: 048
     Dates: start: 20140905, end: 20150107
  2. ONDANSETRON [Suspect]
     Active Substance: ONDANSETRON
     Indication: VOMITING IN PREGNANCY
     Dosage: 4 MG, PRN
     Route: 048
     Dates: start: 20140905, end: 20150107

REACTIONS (15)
  - Haemorrhoids [Unknown]
  - Haematochezia [Unknown]
  - Colitis [Unknown]
  - Menorrhagia [Unknown]
  - Bacterial vaginosis [Unknown]
  - Emotional distress [Unknown]
  - Dyspnoea [Unknown]
  - Diarrhoea [Unknown]
  - Foetal death [Unknown]
  - Cervical dysplasia [Unknown]
  - Injury [Unknown]
  - Folliculitis [Unknown]
  - Maternal exposure during pregnancy [Unknown]
  - Dysuria [Unknown]
  - Product use in unapproved indication [Unknown]
